FAERS Safety Report 5120116-4 (Version None)
Quarter: 2006Q4

REPORT INFORMATION
  Report Type: 
  Country: None (occurrence: None)
  Receive Date: 20061002
  Receipt Date: 20061002
  Transmission Date: 20070319
  Serious: No
  Sender: FDA-Public Use
  Company Number: None

PATIENT
  Sex: Female
  Weight: 81.6475 kg

DRUGS (1)
  1. VALPROIC ACID [Suspect]
     Dosage: 2000 MG BID PO
     Route: 048

REACTIONS (1)
  - NEUTROPENIA [None]
